FAERS Safety Report 6590803-X (Version None)
Quarter: 2010Q1

REPORT INFORMATION
  Report Type: 
  Country: None (occurrence: None)
  Receive Date: 20100219
  Receipt Date: 20100209
  Transmission Date: 20100710
  Serious: Yes (Other)
  Sender: FDA-Public Use
  Company Number: US-PFIZER INC-2009299013

PATIENT
  Sex: Male
  Weight: 136.5 kg

DRUGS (6)
  1. LIPITOR [Suspect]
     Dosage: UNK
  2. SIMVASTATIN [Concomitant]
     Dosage: 20 MG, 1X/DAY (BEDTIME)
     Dates: end: 20091008
  3. NIACIN [Concomitant]
     Dosage: 500 MG, 1X/DAY (BEDTIME)
  4. NIASPAN [Concomitant]
  5. ACETYLSALICYLIC ACID [Concomitant]
  6. LOPID [Concomitant]
     Dosage: UNK

REACTIONS (2)
  - DRUG HYPERSENSITIVITY [None]
  - JAUNDICE [None]
